FAERS Safety Report 13628750 (Version 2)
Quarter: 2017Q2

REPORT INFORMATION
  Report Type: Report from Study
  Country: TW (occurrence: TW)
  Receive Date: 20170607
  Receipt Date: 20170627
  Transmission Date: 20170830
  Serious: Yes (Other)
  Sender: FDA-Public Use
  Company Number: TW-JNJFOC-20170601427

PATIENT
  Age: 31 Year
  Sex: Female
  Weight: 93.5 kg

DRUGS (2)
  1. TRANEXAMIC ACID. [Concomitant]
     Active Substance: TRANEXAMIC ACID
     Indication: CONJUNCTIVAL HAEMORRHAGE
     Route: 048
     Dates: start: 20170523, end: 20170530
  2. STELARA [Suspect]
     Active Substance: USTEKINUMAB
     Indication: PSORIASIS
     Route: 058
     Dates: start: 20140128

REACTIONS (1)
  - Abdominal neoplasm [Recovered/Resolved]

NARRATIVE: CASE EVENT DATE: 20170601
